FAERS Safety Report 23924285 (Version 2)
Quarter: 2024Q2

REPORT INFORMATION
  Report Type: Spontaneous
  Country: US (occurrence: US)
  Receive Date: 20240531
  Receipt Date: 20240605
  Transmission Date: 20240716
  Serious: Yes (Life-Threatening, Hospitalization, Other)
  Sender: FDA-Public Use
  Company Number: US-PFIZER INC-PV202400070185

PATIENT
  Age: 75 Year
  Sex: Male
  Weight: 68.9 kg

DRUGS (17)
  1. RITUXIMAB [Suspect]
     Active Substance: RITUXIMAB
     Indication: Diffuse large B-cell lymphoma
     Dosage: 375 MG/M2, CYCLIC ON DAY 2 EVEENING, INFUSION
     Route: 042
  2. RITUXIMAB [Suspect]
     Active Substance: RITUXIMAB
     Dosage: 25 MG/H, 24 HOURS SINCE ADMISSION, CYCLIC
  3. RITUXIMAB [Suspect]
     Active Substance: RITUXIMAB
     Dosage: 40 MG/H, 25 HOURS SINCE ADMISSION, CYCLIC
  4. RITUXIMAB [Suspect]
     Active Substance: RITUXIMAB
     Dosage: 50 MG/H, 25.5 HOURS SINCE ADMISSION, CYCLIC
  5. RITUXIMAB [Suspect]
     Active Substance: RITUXIMAB
     Dosage: 25 MG/H, 26.5 HOURS SINCE ADMISSION, CYCLIC
  6. RITUXIMAB [Suspect]
     Active Substance: RITUXIMAB
     Dosage: 50 MG/H, 27 HOURS SINCE ADMISSION, CYCLIC
  7. RITUXIMAB [Suspect]
     Active Substance: RITUXIMAB
     Dosage: 75 MG/H, 27.5 HOURS SINCE ADMISSION, CYCLIC
  8. RITUXIMAB [Suspect]
     Active Substance: RITUXIMAB
     Dosage: 100 MG/H, 28 HOURS SINCE ADMISSION, CYCLIC
  9. RITUXIMAB [Suspect]
     Active Substance: RITUXIMAB
     Dosage: 125 MG/H, 28.5 HOURS SINCE ADMISSION, CYCLIC
  10. RITUXIMAB [Suspect]
     Active Substance: RITUXIMAB
     Dosage: 150 MG/H, 29 HOURS SINCE ADMISSION, CYCLIC
  11. DOXORUBICIN HYDROCHLORIDE [Concomitant]
     Active Substance: DOXORUBICIN HYDROCHLORIDE
     Indication: Diffuse large B-cell lymphoma
     Dosage: UNK, CYCLIC
  12. VINCRISTINE SULFATE [Concomitant]
     Active Substance: VINCRISTINE SULFATE
     Indication: Diffuse large B-cell lymphoma
     Dosage: UNK, CYCLIC
  13. CYCLOPHOSPHAMIDE [Concomitant]
     Active Substance: CYCLOPHOSPHAMIDE
     Indication: Diffuse large B-cell lymphoma
     Dosage: 1350 MG, TOTAL (DOSE OF 750 MG/M2), CYCLIC
  14. PREDNISONE [Concomitant]
     Active Substance: PREDNISONE
     Indication: Diffuse large B-cell lymphoma
     Dosage: 100 MG, ON DAYS 3 AND 4, CYCLIC
  15. METHOTREXATE [Concomitant]
     Active Substance: METHOTREXATE
     Indication: Prophylaxis
     Dosage: 12 MG, 18 HRS SINCE ADMISSION
     Route: 037
  16. ACETAMINOPHEN [Concomitant]
     Active Substance: ACETAMINOPHEN
     Dosage: 650 MG,  PRE-TREATMENT
     Route: 048
  17. DIPHENHYDRAMINE [Concomitant]
     Active Substance: DIPHENHYDRAMINE
     Dosage: 25 MG
     Route: 042

REACTIONS (1)
  - Ventricular tachycardia [Unknown]
